FAERS Safety Report 6019279-8 (Version None)
Quarter: 2008Q4

REPORT INFORMATION
  Report Type: 
  Country: None (occurrence: None)
  Receive Date: 20081224
  Receipt Date: 20081218
  Transmission Date: 20090506
  Serious: Yes (Life-Threatening)
  Sender: FDA-Public Use
  Company Number: JP-ASTRAZENECA-2008AP09759

PATIENT
  Age: 34 Year
  Sex: Female

DRUGS (3)
  1. SEROQUEL [Suspect]
     Indication: SCHIZOPHRENIA
     Dosage: 1400 MG
     Route: 048
     Dates: start: 20081218
  2. U-PAN [Suspect]
     Dosage: 28MG
     Route: 048
     Dates: start: 20081218
  3. SOLANAX [Suspect]
     Dosage: 11.2MG
     Route: 048
     Dates: start: 20081218

REACTIONS (2)
  - INTENTIONAL OVERDOSE [None]
  - SUICIDE ATTEMPT [None]
